FAERS Safety Report 5787599-8 (Version None)
Quarter: 2008Q2

REPORT INFORMATION
  Report Type: 
  Country: None (occurrence: None)
  Receive Date: 20080625
  Receipt Date: 20080620
  Transmission Date: 20081010
  Serious: No
  Sender: FDA-Public Use
  Company Number: JP-MERCK-0805USA06120

PATIENT
  Age: 24 Month
  Sex: Female
  Weight: 11 kg

DRUGS (9)
  1. SINGULAIR [Suspect]
     Indication: ASTHMA
     Route: 048
     Dates: start: 20080414, end: 20080520
  2. SODIUM PICOSULFATE [Suspect]
     Indication: CONSTIPATION
     Route: 048
     Dates: start: 20080414, end: 20080520
  3. INOLIN [Suspect]
     Indication: ASTHMA
     Route: 048
     Dates: start: 20080414, end: 20080520
  4. INOLIN [Suspect]
     Indication: ANTITUSSIVE THERAPY
     Route: 048
     Dates: start: 20080414, end: 20080520
  5. PERIACTIN [Suspect]
     Indication: ASTHMA
     Route: 048
     Dates: start: 20080414, end: 20080520
  6. PERIACTIN [Suspect]
     Indication: ANTITUSSIVE THERAPY
     Route: 048
     Dates: start: 20080414, end: 20080520
  7. ASVERIN [Suspect]
     Indication: ASTHMA
     Route: 048
     Dates: start: 20080414, end: 20080520
  8. ASVERIN [Suspect]
     Indication: ANTITUSSIVE THERAPY
     Route: 048
     Dates: start: 20080414, end: 20080520
  9. HOKUNALIN [Concomitant]
     Indication: ASTHMA
     Route: 061
     Dates: start: 20080414, end: 20080520

REACTIONS (1)
  - HEPATIC FUNCTION ABNORMAL [None]
